FAERS Safety Report 5518787-3 (Version None)
Quarter: 2007Q4

REPORT INFORMATION
  Report Type: 
  Country: None (occurrence: None)
  Receive Date: 20071115
  Receipt Date: 20071108
  Transmission Date: 20080405
  Serious: Yes (Life-Threatening)
  Sender: FDA-Public Use
  Company Number: JP-ABBOTT-07P-087-0421676-00

PATIENT
  Sex: Female
  Weight: 42 kg

DRUGS (5)
  1. KLARICID TABLETS [Suspect]
     Indication: PNEUMONIA
     Route: 048
     Dates: start: 20070413, end: 20070420
  2. DEXTROMETHORPHAN HYDROBROMIDE [Concomitant]
     Indication: GENERAL SYMPTOM
     Dates: start: 20070413
  3. DIMEMORFAN PHOSPHATE [Concomitant]
     Indication: GENERAL SYMPTOM
     Route: 048
     Dates: start: 20070420
  4. CEFOZOPRAN HYDROCHLORIDE [Concomitant]
     Indication: PNEUMONIA
     Route: 050
     Dates: start: 20070424
  5. MINOCYCLINE HYDROCHLORIDE [Concomitant]
     Indication: PNEUMONIA
     Dosage: NOT REPORTED
     Dates: start: 20070424

REACTIONS (4)
  - ANTINEUTROPHIL CYTOPLASMIC ANTIBODY POSITIVE [None]
  - GLOMERULONEPHRITIS RAPIDLY PROGRESSIVE [None]
  - POLYARTERITIS NODOSA [None]
  - RENAL INFARCT [None]
